FAERS Safety Report 9722176 (Version 1)
Quarter: 2013Q4

REPORT INFORMATION
  Report Type: Spontaneous
  Country: US (occurrence: US)
  Receive Date: 20131202
  Receipt Date: 20131202
  Transmission Date: 20140711
  Serious: Yes (Death)
  Sender: FDA-Public Use
  Company Number: US-INDICUS PHARMA-000194

PATIENT
  Age: 86 Year
  Sex: Male

DRUGS (8)
  1. METFORMIN HYDROCHLORIDE [Suspect]
     Route: 048
  2. OMEPRAZOLE [Suspect]
     Route: 048
  3. POTASSIUM CHLORIDE [Suspect]
     Route: 048
  4. GLYBURIDE [Suspect]
     Route: 048
  5. FUROSEMIDE [Suspect]
     Route: 048
  6. PRAZOSIN [Suspect]
     Route: 048
  7. METOPROLOL [Suspect]
     Route: 048
  8. VERAPAMIL [Suspect]
     Route: 048

REACTIONS (2)
  - Exposure via ingestion [Fatal]
  - Medication error [Fatal]
